FAERS Safety Report 7405738-X (Version None)
Quarter: 2011Q2

REPORT INFORMATION
  Report Type: 
  Country: None (occurrence: None)
  Receive Date: 20110411
  Receipt Date: 20110405
  Transmission Date: 20111010
  Serious: Yes (Death, Hospitalization, Other)
  Sender: FDA-Public Use
  Company Number: SK-PFIZER INC-2011075021

PATIENT

DRUGS (2)
  1. VORICONAZOLE [Suspect]
  2. ABELCET [Concomitant]
     Dosage: 400 MG, 2X/WEEK

REACTIONS (3)
  - PULMONARY MYCOSIS [None]
  - PANCYTOPENIA [None]
  - ACUTE MYELOID LEUKAEMIA [None]
